FAERS Safety Report 9783903 (Version 2)
Quarter: 2014Q2

REPORT INFORMATION
  Report Type: Spontaneous
  Country: US (occurrence: US)
  Receive Date: 20131226
  Receipt Date: 20140515
  Transmission Date: 20141212
  Serious: No
  Sender: FDA-Public Use
  Company Number: US-PFIZER INC-2013368665

PATIENT
  Age: 68 Year
  Sex: Female

DRUGS (8)
  1. NEURONTIN [Suspect]
     Dosage: UNK
  2. CIPRO [Suspect]
     Dosage: UNK
  3. CIPROFLOXACIN HCL [Suspect]
     Dosage: UNK
  4. SCOPOLAMINE HBR [Suspect]
     Dosage: UNK
  5. LEVAQUIN [Suspect]
     Dosage: UNK
  6. BACTRIM DS [Suspect]
     Dosage: UNK
  7. TOPAMAX [Suspect]
     Dosage: UNK
  8. NEOSPORIN EYE DROPS [Suspect]

REACTIONS (1)
  - Drug hypersensitivity [Unknown]
